FAERS Safety Report 4983061-0 (Version None)
Quarter: 2006Q2

REPORT INFORMATION
  Report Type: 
  Country: None (occurrence: None)
  Receive Date: 20060420
  Receipt Date: 20060411
  Transmission Date: 20061013
  Serious: Yes (Other)
  Sender: FDA-Public Use
  Company Number: 2006045030

PATIENT
  Age: 77 Year
  Sex: Female
  Weight: 72.5755 kg

DRUGS (10)
  1. NEURONTIN [Suspect]
     Indication: NEUROPATHY PERIPHERAL
     Dates: start: 20040101, end: 20050101
  2. GABAPENTIN [Suspect]
     Indication: NEUROPATHY PERIPHERAL
     Dosage: ORAL
     Route: 048
     Dates: start: 20050101, end: 20050101
  3. LYRICA [Suspect]
     Indication: NEUROPATHY PERIPHERAL
     Dosage: 300 MG (150 MG, 2 IN 1 D) ORAL
     Route: 048
     Dates: start: 20050101
  4. LUTEIN (XANTHOPHYLL) [Suspect]
     Indication: CATARACT OPERATION
     Dosage: 6 MG
  5. DIURETICS [Concomitant]
  6. DRUG, UNSPECIFIED [Concomitant]
  7. ALL OTHER THERAPEUTIC PRODUCTS [Concomitant]
  8. MULTIVITAMIN [Concomitant]
  9. VITAMIN E [Concomitant]
  10. FOSAMAX [Concomitant]

REACTIONS (9)
  - CATARACT OPERATION [None]
  - DRUG INEFFECTIVE [None]
  - EUPHORIC MOOD [None]
  - MEMORY IMPAIRMENT [None]
  - OEDEMA PERIPHERAL [None]
  - RASH [None]
  - SOMNOLENCE [None]
  - VISION BLURRED [None]
  - WEIGHT INCREASED [None]
